FAERS Safety Report 8254240-4 (Version None)
Quarter: 2012Q2

REPORT INFORMATION
  Report Type: 
  Country: None (occurrence: None)
  Receive Date: 20120402
  Receipt Date: 20120322
  Transmission Date: 20120825
  Serious: No
  Sender: FDA-Public Use
  Company Number: US-AMGEN-USASP2012018577

PATIENT
  Age: 56 Year
  Sex: Female

DRUGS (2)
  1. ENBREL [Suspect]
     Indication: RHEUMATOID ARTHRITIS
     Dosage: 50 MG, QWK
     Dates: start: 20040901
  2. METHOTREXATE [Concomitant]
     Dosage: 1 MG, UNK
     Dates: start: 20040101

REACTIONS (2)
  - INJECTION SITE PAIN [None]
  - INJECTION SITE HAEMORRHAGE [None]
